FAERS Safety Report 7343834-6 (Version None)
Quarter: 2011Q1

REPORT INFORMATION
  Report Type: 
  Country: None (occurrence: None)
  Receive Date: 20110310
  Receipt Date: 20110304
  Transmission Date: 20110831
  Serious: Yes (Other)
  Sender: FDA-Public Use
  Company Number: CN-ROCHE-758149

PATIENT
  Age: 12 Year
  Sex: Male

DRUGS (3)
  1. CALCIUM CARBONATE [Concomitant]
     Dosage: 0.75 GM EVERY DAY
  2. CEFTRIAXONE SODIUM [Suspect]
     Dosage: DRUG:CEFTRIAXONE 2 GM EVERY DAY (IN 50 ML OF GLUCOSE)
     Route: 041
  3. PREDNISOLONE [Concomitant]
     Dosage: 60 MG/DAY (ADMINISTERED IN THREE PER-ORAL DOSES)
     Route: 048

REACTIONS (1)
  - CHOLELITHIASIS [None]
